FAERS Safety Report 13373600 (Version 5)
Quarter: 2018Q2

REPORT INFORMATION
  Report Type: Report from Study
  Country: DE (occurrence: DE)
  Receive Date: 20170327
  Receipt Date: 20180427
  Transmission Date: 20180711
  Serious: Yes (Hospitalization, Other)
  Sender: FDA-Public Use
  Company Number: DE-VIFOR (INTERNATIONAL) INC.-VIT-2017-03069

PATIENT
  Age: 77 Year
  Sex: Female
  Weight: 60.2 kg

DRUGS (33)
  1. EPOETIN ALFA [Concomitant]
     Active Substance: ERYTHROPOIETIN
     Indication: CHRONIC KIDNEY DISEASE
     Dosage: 6000 IE
     Dates: start: 20160307
  2. CANDESARTAN. [Concomitant]
     Active Substance: CANDESARTAN
  3. ACETYLSALICYLIC ACID [Concomitant]
     Active Substance: ASPIRIN
  4. OSVAREN [Concomitant]
     Active Substance: CALCIUM ACETATE\MAGNESIUM CARBONATE
     Indication: CHRONIC KIDNEY DISEASE
     Dates: start: 20160427
  5. VITARENAL [Concomitant]
  6. MELPERON [Concomitant]
     Active Substance: MELPERONE
  7. QUERTO [Concomitant]
  8. ZOCOR FORTE [Concomitant]
  9. SIMVASTATIN. [Concomitant]
     Active Substance: SIMVASTATIN
  10. FERRLECIT [Concomitant]
     Active Substance: SODIUM FERRIC GLUCONATE COMPLEX
     Indication: CHRONIC KIDNEY DISEASE
     Dates: start: 20160223, end: 20160826
  11. HEPARIN-NATRIUM 7500 FS [Concomitant]
     Dosage: 7500 IE
     Dates: start: 20160722, end: 20160822
  12. RENVELA [Concomitant]
     Active Substance: SEVELAMER CARBONATE
     Indication: CHRONIC KIDNEY DISEASE
     Dates: start: 20160415
  13. ACETYLSALICYLIC ACID [Concomitant]
     Active Substance: ASPIRIN
     Indication: CHRONIC KIDNEY DISEASE
     Dates: start: 20160719
  14. GODAMED TAH [Concomitant]
  15. TRAMADOL. [Concomitant]
     Active Substance: TRAMADOL
  16. PANTOPRAZOLE SODIUM SESQUIHYDRATE [Concomitant]
     Active Substance: PANTOPRAZOLE SODIUM
  17. ENALAPRIL [Concomitant]
     Active Substance: ENALAPRIL
  18. LEVETIRACETAM. [Concomitant]
     Active Substance: LEVETIRACETAM
  19. ALLOPURINOL. [Concomitant]
     Active Substance: ALLOPURINOL
  20. MAGNESIUM [Concomitant]
     Active Substance: MAGNESIUM
  21. METAMIZOLE MAGNESIUM [Concomitant]
     Active Substance: METAMIZOLE MAGNESIUM
  22. VELPHORO [Suspect]
     Active Substance: FERRIC OXYHYDROXIDE
     Indication: HYPERPHOSPHATAEMIA
     Route: 048
     Dates: start: 20160817, end: 20170215
  23. PREDNISOLONE. [Concomitant]
     Active Substance: PREDNISOLONE
  24. HYDROCORTISONE. [Concomitant]
     Active Substance: HYDROCORTISONE
  25. FORTIMEL RENAL [Concomitant]
  26. ZEMPLAR [Concomitant]
     Active Substance: PARICALCITOL
     Indication: CHRONIC KIDNEY DISEASE
     Dates: start: 20160613
  27. AMLODIPINE [Concomitant]
     Active Substance: AMLODIPINE BESYLATE
  28. DEKRISTOL [Concomitant]
     Active Substance: CHOLECALCIFEROL
  29. DECOSTRIOL [Concomitant]
     Active Substance: CALCITRIOL
     Indication: CHRONIC KIDNEY DISEASE
     Dates: start: 20160224
  30. AMLODIPINE [Concomitant]
     Active Substance: AMLODIPINE BESYLATE
  31. NOVALGIN (METAMIZOLE SODIUM) [Concomitant]
     Active Substance: METAMIZOLE SODIUM
  32. DEKRISTOL [Concomitant]
     Active Substance: CHOLECALCIFEROL
  33. URAPIDIL [Concomitant]
     Active Substance: URAPIDIL

REACTIONS (2)
  - Gastrointestinal haemorrhage [Unknown]
  - Haematemesis [Recovered/Resolved]

NARRATIVE: CASE EVENT DATE: 20170107
